FAERS Safety Report 21006468 (Version 1)
Quarter: 2022Q2

REPORT INFORMATION
  Report Type: Spontaneous
  Country: FR (occurrence: FR)
  Receive Date: 20220624
  Receipt Date: 20220624
  Transmission Date: 20220720
  Serious: Yes (Life-Threatening)
  Sender: FDA-Public Use
  Company Number: FR-SA-2021SA233448

PATIENT
  Age: 31 Year
  Sex: Female
  Weight: 72 kg

DRUGS (2)
  1. DILTIAZEM HYDROCHLORIDE [Suspect]
     Active Substance: DILTIAZEM HYDROCHLORIDE
     Indication: Tachycardia
     Route: 048
     Dates: start: 20210409, end: 20210413
  2. SOTALOL HYDROCHLORIDE [Suspect]
     Active Substance: SOTALOL HYDROCHLORIDE
     Indication: Tachycardia
     Route: 048
     Dates: start: 20210409, end: 20210413

REACTIONS (2)
  - Cardioactive drug level increased [Recovered/Resolved]
  - Bradycardia [Recovered/Resolved]
